FAERS Safety Report 9665197 (Version 2)
Quarter: 2013Q4

REPORT INFORMATION
  Report Type: Report from Study
  Country: US (occurrence: US)
  Receive Date: 20131101
  Receipt Date: 20131101
  Transmission Date: 20140711
  Serious: Yes (Death, Hospitalization, Other)
  Sender: FDA-Public Use
  Company Number: US-ROCHE-1282562

PATIENT
  Sex: Male

DRUGS (15)
  1. ERIVEDGE [Suspect]
     Indication: BASAL CELL CARCINOMA
     Route: 065
     Dates: start: 20120823, end: 20130121
  2. PLAVIX [Concomitant]
  3. AMLODIPINE [Concomitant]
  4. DIOVAN [Concomitant]
  5. INDAPAMIDE [Concomitant]
  6. FUROSEMIDE [Concomitant]
  7. COMBIVENT [Concomitant]
  8. ASA [Concomitant]
  9. LIPITOR [Concomitant]
  10. CLONIDINE [Concomitant]
  11. FESO4 [Concomitant]
  12. OMEPRAZOLE [Concomitant]
  13. INSULIN [Concomitant]
  14. PRANDIN [Concomitant]
  15. INDAPAMIDE [Concomitant]

REACTIONS (7)
  - Cardiac failure [Fatal]
  - Anaemia [Fatal]
  - Myocardial infarction [Unknown]
  - Cardiac valve disease [Unknown]
  - Weight decreased [Unknown]
  - Muscle spasms [Unknown]
  - Dysgeusia [Recovered/Resolved]
